FAERS Safety Report 17005783 (Version 1)
Quarter: 2019Q4

REPORT INFORMATION
  Report Type: Spontaneous
  Country: FR (occurrence: FR)
  Receive Date: 20191107
  Receipt Date: 20191107
  Transmission Date: 20200122
  Serious: Yes (Other)
  Sender: FDA-Public Use
  Company Number: FR-US-PROVELL PHARMACEUTICALS LLC-9126247

PATIENT
  Sex: Male

DRUGS (1)
  1. LEVOTHYROX 75 NF [Suspect]
     Active Substance: LEVOTHYROXINE SODIUM
     Indication: PRODUCT USED FOR UNKNOWN INDICATION

REACTIONS (10)
  - Social avoidant behaviour [Unknown]
  - Fatigue [Unknown]
  - Muscle contracture [Unknown]
  - Insomnia [Unknown]
  - Myalgia [Unknown]
  - Weight decreased [Unknown]
  - Depression [Unknown]
  - Decreased appetite [Unknown]
  - Vertigo [Unknown]
  - Somnolence [Unknown]
